FAERS Safety Report 21104907 (Version 1)
Quarter: 2022Q3

REPORT INFORMATION
  Report Type: Spontaneous
  Country: US (occurrence: US)
  Receive Date: 20220720
  Receipt Date: 20220720
  Transmission Date: 20221026
  Serious: No
  Sender: FDA-Public Use
  Company Number: USA--2022-US-000065

PATIENT
  Age: 81 Year
  Sex: Male

DRUGS (1)
  1. DORZOLAMIDE HYDROCHLORIDE\TIMOLOL MALEATE [Suspect]
     Active Substance: DORZOLAMIDE HYDROCHLORIDE\TIMOLOL MALEATE
     Dates: start: 20220104, end: 20220124

REACTIONS (2)
  - Foreign body [Recovered/Resolved]
  - Eye irritation [Recovered/Resolved]

NARRATIVE: CASE EVENT DATE: 20220114
